FAERS Safety Report 9180486 (Version 1)
Quarter: 2013Q1

REPORT INFORMATION
  Report Type: Spontaneous
  Country: JP (occurrence: JP)
  Receive Date: 20130322
  Receipt Date: 20130322
  Transmission Date: 20140127
  Serious: Yes (Hospitalization)
  Sender: FDA-Public Use
  Company Number: JP-PAR PHARMACEUTICAL, INC-2013SCPR005844

PATIENT
  Sex: 0

DRUGS (4)
  1. MORPHINE SULFATE [Suspect]
     Indication: BONE PAIN
     Dosage: UNK, UNKNOWN
     Route: 065
  2. ZOLEDRONIC ACID [Suspect]
     Indication: METASTASES TO BONE
     Dosage: UNK, UNKNOWN
     Route: 065
  3. CARBOPLATIN [Suspect]
     Indication: NON-SMALL CELL LUNG CANCER STAGE IV
     Dosage: UNK, UNKNOWN
     Route: 065
  4. PACLITAXEL [Suspect]
     Indication: NON-SMALL CELL LUNG CANCER STAGE IV
     Dosage: UNK, UNKNOWN
     Route: 065

REACTIONS (5)
  - Portal venous gas [Recovered/Resolved]
  - Decreased appetite [Unknown]
  - Decreased activity [Unknown]
  - Constipation [Recovered/Resolved]
  - Nausea [Unknown]
